FAERS Safety Report 9284439 (Version 3)
Quarter: 2022Q1

REPORT INFORMATION
  Report Type: Report from Study
  Country: US (occurrence: US)
  Receive Date: 20130510
  Receipt Date: 20220216
  Transmission Date: 20220423
  Serious: Yes (Hospitalization, Other)
  Sender: FDA-Public Use
  Company Number: US-SHIRE-ALL1-2013-02771

PATIENT
  Age: 8 Year
  Sex: Male
  Weight: 25.85 kg

DRUGS (7)
  1. IDURSULFASE [Suspect]
     Active Substance: IDURSULFASE
     Indication: Mucopolysaccharidosis II
     Dosage: 18 MG, 1X/WEEK (3 VIALS WEEKLY)
     Route: 041
     Dates: start: 20090303
  2. IDURSULFASE [Suspect]
     Active Substance: IDURSULFASE
     Dosage: 0.74 MILLIGRAM/KILOGRAM, 1/WEEK
     Route: 042
     Dates: start: 20090303
  3. IDURSULFASE [Suspect]
     Active Substance: IDURSULFASE
     Dosage: 0.7 MILLIGRAM/KILOGRAM, 1/WEEK
     Route: 042
     Dates: start: 20090917
  4. BENZODIAZEPINE [Concomitant]
     Active Substance: BENZODIAZEPINE
     Indication: Premedication
     Dosage: 3 ML, AS REQ^D
     Route: 048
     Dates: start: 20090512
  5. HEPARIN [Concomitant]
     Active Substance: HEPARIN SODIUM
     Indication: Product used for unknown indication
     Dosage: UNK, UNKNOWN
     Route: 065
  6. EPIPEN [Concomitant]
     Active Substance: EPINEPHRINE
     Indication: Product used for unknown indication
     Dosage: UNK, UNKNOWN
     Route: 065
  7. SODIUM CHLORIDE [Concomitant]
     Active Substance: SODIUM CHLORIDE
     Indication: Product used for unknown indication
     Dosage: UNK, UNKNOWN
     Route: 065

REACTIONS (1)
  - Vascular access site infection [Recovering/Resolving]

NARRATIVE: CASE EVENT DATE: 20130427
